FAERS Safety Report 5096213-9 (Version None)
Quarter: 2006Q3

REPORT INFORMATION
  Report Type: 
  Country: None (occurrence: None)
  Receive Date: 20060905
  Receipt Date: 20060822
  Transmission Date: 20061208
  Serious: Yes (Hospitalization)
  Sender: FDA-Public Use
  Company Number: DE-ROCHE-460273

PATIENT
  Age: 47 Year
  Sex: Male
  Weight: 71 kg

DRUGS (3)
  1. CAPECITABINE [Suspect]
     Indication: COLORECTAL CANCER
     Dosage: ACTUAL DAILY DOSE = 2500 MG. ADMINISTERED ON DAYS 1-14 OF A THREE WEEK CYCLE.
     Route: 048
     Dates: start: 20060628, end: 20060821
  2. AVASTIN [Suspect]
     Indication: COLORECTAL CANCER
     Dosage: ACTUAL DOSE = 532.5 MG.
     Route: 042
     Dates: start: 20060628
  3. IRINOTECAN HCL [Suspect]
     Indication: COLORECTAL CANCER
     Dosage: ACTUAL DOSE REPORTED AS 372 MG
     Route: 042
     Dates: start: 20060628

REACTIONS (2)
  - ANAL ULCER [None]
  - PROCTALGIA [None]
